FAERS Safety Report 6610358-0 (Version None)
Quarter: 2010Q1

REPORT INFORMATION
  Report Type: 
  Country: None (occurrence: None)
  Receive Date: 20100302
  Receipt Date: 20100225
  Transmission Date: 20100710
  Serious: Yes (Other)
  Sender: FDA-Public Use
  Company Number: ES-BAYER-200938943GPV

PATIENT
  Age: 93 Year
  Sex: Female

DRUGS (3)
  1. ACTIRA 400 MG COMPRIMIDOS RECUBIERTOS CON PELICULA , 100 COMPRIMIDOS [Suspect]
     Indication: PNEUMONIA
     Route: 048
     Dates: start: 20090609, end: 20090625
  2. TAVANIC 5 MG/ML SOLUCION PARA PERFUSION, 20 FRASCOS DE 100 ML [Suspect]
     Dosage: UNIT DOSE: 5 MG/ML
     Route: 042
     Dates: start: 20090609
  3. TAVANIC 5 MG/ML SOLUCION PARA PERFUSION, 20 FRASCOS DE 100 ML [Suspect]
     Route: 042
     Dates: start: 20090609

REACTIONS (1)
  - HYPO HDL CHOLESTEROLAEMIA [None]
